FAERS Safety Report 7805950-1 (Version None)
Quarter: 2011Q4

REPORT INFORMATION
  Report Type: 
  Country: None (occurrence: None)
  Receive Date: 20111007
  Receipt Date: 20111007
  Transmission Date: 20120403
  Serious: Yes (Other)
  Sender: FDA-Public Use
  Company Number: None

PATIENT
  Age: 68 Year
  Sex: Male
  Weight: 81.8 kg

DRUGS (1)
  1. NASONEX [Suspect]

REACTIONS (6)
  - INSOMNIA [None]
  - MUSCLE TWITCHING [None]
  - SINUS HEADACHE [None]
  - ABNORMAL DREAMS [None]
  - MALAISE [None]
  - TINNITUS [None]
